FAERS Safety Report 24774377 (Version 1)
Quarter: 2024Q4

REPORT INFORMATION
  Report Type: Spontaneous
  Country: AU (occurrence: AU)
  Receive Date: 20241225
  Receipt Date: 20241225
  Transmission Date: 20250114
  Serious: Yes (Other)
  Sender: AMGEN
  Company Number: AU-AMGEN-AUSSP2024250882

PATIENT
  Age: 69 Year
  Sex: Female

DRUGS (3)
  1. PROLIA [Suspect]
     Active Substance: DENOSUMAB
     Indication: Osteogenesis imperfecta
     Dosage: UNK, Q2MO
     Route: 065
  2. PROLIA [Suspect]
     Active Substance: DENOSUMAB
     Indication: Off label use
     Dosage: UNK, Q2MO
     Route: 065
     Dates: start: 2024
  3. ALBUTEROL SULFATE [Concomitant]
     Active Substance: ALBUTEROL SULFATE
     Indication: Asthma

REACTIONS (6)
  - Sternal fracture [Unknown]
  - Pelvic fracture [Unknown]
  - Fall [Unknown]
  - Therapy interrupted [Unknown]
  - Off label use [Unknown]
  - Rib fracture [Unknown]

NARRATIVE: CASE EVENT DATE: 20240101
